FAERS Safety Report 5113520-1 (Version None)
Quarter: 2006Q3

REPORT INFORMATION
  Report Type: 
  Country: None (occurrence: None)
  Receive Date: 20060920
  Receipt Date: 20060901
  Transmission Date: 20061208
  Serious: Yes (Death, Life-Threatening, Hospitalization)
  Sender: FDA-Public Use
  Company Number: NL200605006685

PATIENT
  Age: 70 Year
  Sex: Male

DRUGS (1)
  1. PEMETREXED(PEMETREXED UNKNOWN FORMULATION) UNKNOWN [Suspect]
     Indication: NON-SMALL CELL LUNG CANCER
     Dosage: 500 MG/M2, OTHER, INTRAVENOUS
     Route: 042
     Dates: start: 20060510, end: 20060608

REACTIONS (4)
  - ASCITES [None]
  - CONSTIPATION [None]
  - MALIGNANT NEOPLASM PROGRESSION [None]
  - NON-SMALL CELL LUNG CANCER [None]
